FAERS Safety Report 25287837 (Version 3)
Quarter: 2025Q2

REPORT INFORMATION
  Report Type: Spontaneous
  Country: PL (occurrence: PL)
  Receive Date: 20250509
  Receipt Date: 20250605
  Transmission Date: 20250716
  Serious: Yes (Other)
  Sender: PFIZER
  Company Number: PL-PFIZER INC-PV202500054568

PATIENT
  Age: 27 Year
  Sex: Female

DRUGS (3)
  1. ETHINYL ESTRADIOL\LEVONORGESTREL [Interacting]
     Active Substance: ETHINYL ESTRADIOL\LEVONORGESTREL
     Indication: Hormonal contraception
  2. LYMECYCLINE [Suspect]
     Active Substance: LYMECYCLINE
     Dosage: 300 MG, 2X/DAY
     Route: 048
  3. SEMAGLUTIDE [Interacting]
     Active Substance: SEMAGLUTIDE
     Indication: Weight control
     Dosage: 1 MG, WEEKLY

REACTIONS (2)
  - Pancreatitis acute [Unknown]
  - Drug interaction [Unknown]
